FAERS Safety Report 18615197 (Version 2)
Quarter: 2020Q4

REPORT INFORMATION
  Report Type: Spontaneous
  Country: FR (occurrence: FR)
  Receive Date: 20201214
  Receipt Date: 20201230
  Transmission Date: 20210114
  Serious: Yes (Other)
  Sender: FDA-Public Use
  Company Number: FR-009507513-2012FRA003826

PATIENT
  Age: 76 Year
  Sex: Male
  Weight: 99.5 kg

DRUGS (1)
  1. KEYTRUDA [Suspect]
     Active Substance: PEMBROLIZUMAB
     Indication: TRANSITIONAL CELL CARCINOMA
     Dosage: 1 DOSAGE FORM, CYCLICAL
     Route: 041
     Dates: start: 20200505

REACTIONS (2)
  - Myalgia [Recovering/Resolving]
  - Arthritis [Recovering/Resolving]

NARRATIVE: CASE EVENT DATE: 20201020
